FAERS Safety Report 7170927-9 (Version None)
Quarter: 2010Q4

REPORT INFORMATION
  Report Type: 
  Country: None (occurrence: None)
  Receive Date: 20101217
  Receipt Date: 20101209
  Transmission Date: 20110411
  Serious: Yes (Hospitalization)
  Sender: FDA-Public Use
  Company Number: AU-ELI_LILLY_AND_COMPANY-AU201012002780

PATIENT
  Sex: Male

DRUGS (6)
  1. GEMCITABINE HCL [Suspect]
     Indication: PANCREATIC CARCINOMA METASTATIC
     Dosage: 1000 MG/M2, UNKNOWN
     Route: 065
     Dates: start: 20100825
  2. ENALAPRIL [Concomitant]
     Indication: HYPERTENSION
     Route: 048
     Dates: start: 19900101
  3. LASIX [Concomitant]
     Indication: HYPERTENSION
     Route: 048
     Dates: start: 19900101
  4. PREDNISONE [Concomitant]
     Indication: RHEUMATOID ARTHRITIS
     Route: 048
     Dates: start: 20100501
  5. BUPRENORPHINE [Concomitant]
     Indication: RHEUMATOID ARTHRITIS
     Route: 061
     Dates: start: 20080101
  6. PANADOL OSTEO [Concomitant]
     Indication: RHEUMATOID ARTHRITIS
     Route: 048
     Dates: start: 20090101

REACTIONS (1)
  - LOWER RESPIRATORY TRACT INFECTION [None]
